FAERS Safety Report 22366960 (Version 1)
Quarter: 2023Q2

REPORT INFORMATION
  Report Type: Spontaneous
  Country: US (occurrence: None)
  Receive Date: 20230525
  Receipt Date: 20230525
  Transmission Date: 20230722
  Serious: Yes (Other)
  Sender: FDA-Public Use
  Company Number: None

PATIENT
  Age: 62 Year
  Sex: Female

DRUGS (2)
  1. HUMIRA [Suspect]
     Active Substance: ADALIMUMAB
  2. REPATHA [Suspect]
     Active Substance: EVOLOCUMAB

REACTIONS (1)
  - Thrombosis [None]

NARRATIVE: CASE EVENT DATE: 20230523
